FAERS Safety Report 7275745 (Version 24)
Quarter: 2014Q1

REPORT INFORMATION
  Report Type: Spontaneous
  Country: US (occurrence: US)
  Receive Date: 20100211
  Receipt Date: 20140321
  Transmission Date: 20141002
  Serious: Yes (Hospitalization, Other)
  Sender: FDA-Public Use
  Company Number: PHEH2010US01810

PATIENT
  Sex: Male

DRUGS (33)
  1. AREDIA [Suspect]
     Indication: PLASMA CELL MYELOMA
     Route: 041
  2. ZOMETA [Suspect]
     Indication: PLASMA CELL MYELOMA
     Route: 041
  3. LISINOPRIL [Concomitant]
  4. ISOSORBIDE [Concomitant]
  5. AMLODIPINE [Concomitant]
  6. SIMVASTATIN [Concomitant]
  7. PEN-VEE-K [Concomitant]
  8. ALLOPURINOL [Concomitant]
  9. DARVOCET-N [Concomitant]
  10. TYLENOL [Concomitant]
  11. FENTANYL [Concomitant]
  12. MELPHALAN [Concomitant]
  13. PREDNISONE [Concomitant]
  14. COUMADINE [Concomitant]
  15. ATENOLOL [Concomitant]
  16. FOLATE SODIUM [Concomitant]
  17. FUROSEMIDE [Concomitant]
  18. PROCHLORPERAZINE [Concomitant]
  19. FLOMAX [Concomitant]
  20. COZAAR [Concomitant]
     Dosage: 50 MG, QD
  21. DURAGESIC [Concomitant]
     Dosage: 25 UG, ENERY THREE DAYS
  22. ADVAIR [Concomitant]
     Dosage: 1 DF, BID
  23. LEVAQUIN [Concomitant]
  24. SOTALOL [Concomitant]
     Dosage: 1.5 DF, QD
  25. DILAUDID [Concomitant]
     Dosage: 2 MG, QID
     Route: 048
  26. COMPAZINE [Concomitant]
     Dosage: 10 MG, TID
     Route: 048
  27. CENTRUM SILVER [Concomitant]
     Dosage: 1 DF, QD
     Route: 048
  28. NASONEX [Concomitant]
     Dosage: 50 UG, UNK
     Route: 045
  29. RISPERDAL [Concomitant]
     Dosage: 0.25 MG, QHS
     Route: 048
  30. DARVON [Concomitant]
  31. LASIX [Concomitant]
  32. NEXIUM [Concomitant]
  33. RHINOCORT AQUA [Concomitant]

REACTIONS (128)
  - Cardiac failure congestive [Unknown]
  - Osteonecrosis of jaw [Unknown]
  - General physical health deterioration [Unknown]
  - Pain [Unknown]
  - Anxiety [Unknown]
  - Anhedonia [Unknown]
  - Pneumonia [Unknown]
  - Head injury [Unknown]
  - Wound [Unknown]
  - Subdural haematoma [Unknown]
  - Prostate cancer [Unknown]
  - Pulmonary mass [Unknown]
  - Tooth abscess [Unknown]
  - Primary sequestrum [Unknown]
  - Thrombocytopenia [Unknown]
  - Neuralgia [Unknown]
  - Osteopenia [Unknown]
  - Upper respiratory tract infection [Unknown]
  - Gastroenteritis [Unknown]
  - Ecchymosis [Unknown]
  - Herpes zoster [Unknown]
  - Tinnitus [Unknown]
  - Cerebral atrophy [Unknown]
  - Rotator cuff syndrome [Unknown]
  - Lymphadenopathy [Unknown]
  - Aortic arteriosclerosis [Unknown]
  - Intervertebral disc degeneration [Unknown]
  - Subarachnoid haemorrhage [Unknown]
  - Hiatus hernia [Unknown]
  - Depression [Unknown]
  - Facet joint syndrome [Unknown]
  - Renal cyst [Unknown]
  - Exposed bone in jaw [Unknown]
  - Purulent discharge [Unknown]
  - Melaena [Unknown]
  - Chronic obstructive pulmonary disease [Unknown]
  - Haemoptysis [Unknown]
  - Diverticulum intestinal [Unknown]
  - Duodenitis [Unknown]
  - Splenomegaly [Unknown]
  - Gout [Unknown]
  - Renal failure chronic [Unknown]
  - Atelectasis [Unknown]
  - Hepatic steatosis [Unknown]
  - Mitral valve incompetence [Unknown]
  - Sick sinus syndrome [Unknown]
  - Hypertension [Unknown]
  - Dementia [Unknown]
  - Coronary artery disease [Unknown]
  - Osteomyelitis [Unknown]
  - Pleural effusion [Unknown]
  - Confusional state [Unknown]
  - Coordination abnormal [Unknown]
  - Haemorrhoids [Unknown]
  - Gastrointestinal haemorrhage [Unknown]
  - Sinus bradycardia [Unknown]
  - Leukocytosis [Unknown]
  - Lymphoma [Unknown]
  - Hydrocephalus [Unknown]
  - Cerebral ventricle dilatation [Unknown]
  - Encephalomalacia [Unknown]
  - Plasmacytosis [Unknown]
  - Sarcoidosis [Unknown]
  - Atrioventricular block first degree [Unknown]
  - Malignant melanoma [Unknown]
  - Second primary malignancy [Unknown]
  - Submandibular mass [Unknown]
  - Headache [Unknown]
  - Dizziness [Unknown]
  - Abdominal pain [Unknown]
  - Local swelling [Unknown]
  - Hypercalcaemia [Unknown]
  - Back pain [Unknown]
  - Skin lesion [Unknown]
  - Dyspnoea [Unknown]
  - Fall [Unknown]
  - Anaemia [Unknown]
  - Hyperuricaemia [Unknown]
  - Constipation [Unknown]
  - Sinus disorder [Unknown]
  - Hyperlipidaemia [Unknown]
  - Pollakiuria [Unknown]
  - Lethargy [Unknown]
  - Hypocalcaemia [Unknown]
  - Personality change [Unknown]
  - Nausea [Unknown]
  - Somnolence [Unknown]
  - Chest pain [Unknown]
  - Dysphonia [Unknown]
  - Balance disorder [Unknown]
  - Arthritis [Unknown]
  - Weight decreased [Unknown]
  - Fatigue [Unknown]
  - Oedema [Unknown]
  - Gastrooesophageal reflux disease [Unknown]
  - Nocturia [Unknown]
  - Contusion [Unknown]
  - Dyslipidaemia [Unknown]
  - Amnesia [Unknown]
  - Vomiting [Unknown]
  - Diarrhoea [Unknown]
  - Osteoarthritis [Unknown]
  - Deafness neurosensory [Unknown]
  - Dental fistula [Unknown]
  - Loose tooth [Unknown]
  - Dental caries [Unknown]
  - Pain in extremity [Unknown]
  - Gastric ulcer [Unknown]
  - Dyskinesia oesophageal [Unknown]
  - Coronary artery stenosis [Unknown]
  - Gliosis [Unknown]
  - Syncope [Unknown]
  - Pericardial effusion [Unknown]
  - Vascular calcification [Unknown]
  - Osteosclerosis [Unknown]
  - Macular degeneration [Unknown]
  - Soft tissue mass [Unknown]
  - Pelvic mass [Unknown]
  - Prostatomegaly [Unknown]
  - Pancytopenia [Unknown]
  - Lipoatrophy [Unknown]
  - Bursa disorder [Unknown]
  - Tendon calcification [Unknown]
  - Spinal osteoarthritis [Unknown]
  - Emphysema [Unknown]
  - Bone lesion [Unknown]
  - Urinary hesitation [Unknown]
  - Musculoskeletal discomfort [Unknown]
